FAERS Safety Report 19186371 (Version 2)
Quarter: 2021Q2

REPORT INFORMATION
  Report Type: Spontaneous
  Country: TR (occurrence: TR)
  Receive Date: 20210427
  Receipt Date: 20210507
  Transmission Date: 20210717
  Serious: Yes (Hospitalization)
  Sender: FDA-Public Use
  Company Number: TR-BIOGEN-2020BI00952763

PATIENT
  Age: 34 Year
  Sex: Male
  Weight: 73 kg

DRUGS (2)
  1. TYSABRI [Suspect]
     Active Substance: NATALIZUMAB
     Dosage: LAST TWO INFUSIONS
     Route: 065
     Dates: start: 2020
  2. TYSABRI [Suspect]
     Active Substance: NATALIZUMAB
     Indication: MULTIPLE SCLEROSIS
     Dosage: FIRST THREE INFUSIONS
     Route: 065
     Dates: start: 201912, end: 2020

REACTIONS (2)
  - Autoimmune demyelinating disease [Unknown]
  - Prescribed underdose [Unknown]

NARRATIVE: CASE EVENT DATE: 2020
